FAERS Safety Report 8005460-5 (Version None)
Quarter: 2011Q4

REPORT INFORMATION
  Report Type: 
  Country: None (occurrence: None)
  Receive Date: 20111223
  Receipt Date: 20111215
  Transmission Date: 20120403
  Serious: Yes (Hospitalization)
  Sender: FDA-Public Use
  Company Number: ES-SANOFI-AVENTIS-2011SA082434

PATIENT
  Age: 57 Year
  Sex: Male

DRUGS (3)
  1. XELODA [Suspect]
     Route: 065
     Dates: start: 20070101
  2. OXALIPLATIN [Suspect]
     Route: 065
     Dates: start: 20070101
  3. TAXOTERE [Suspect]
     Route: 065
     Dates: start: 20060101

REACTIONS (1)
  - PNEUMATOSIS INTESTINALIS [None]
